FAERS Safety Report 7364281-7 (Version None)
Quarter: 2011Q1

REPORT INFORMATION
  Report Type: 
  Country: None (occurrence: None)
  Receive Date: 20110321
  Receipt Date: 20110311
  Transmission Date: 20110831
  Serious: Yes (Hospitalization)
  Sender: FDA-Public Use
  Company Number: B0698989A

PATIENT
  Sex: Female
  Weight: 94.1 kg

DRUGS (2)
  1. AVANDAMET [Suspect]
     Indication: DIABETES MELLITUS
     Route: 048
  2. AVANDIA [Suspect]
     Indication: DIABETES MELLITUS
     Dosage: 4MG UNKNOWN
     Route: 048

REACTIONS (6)
  - FLUID RETENTION [None]
  - HYPERLIPIDAEMIA [None]
  - OEDEMA PERIPHERAL [None]
  - CHEST PAIN [None]
  - ARTERIOSPASM CORONARY [None]
  - HYPERTENSION [None]
